FAERS Safety Report 15125416 (Version 1)
Quarter: 2018Q3

REPORT INFORMATION
  Report Type: Spontaneous
  Country: BR (occurrence: BR)
  Receive Date: 20180710
  Receipt Date: 20180710
  Transmission Date: 20181010
  Serious: Yes (Hospitalization)
  Sender: FDA-Public Use
  Company Number: BR-B.I. PHARMACEUTICALS,INC./RIDGEFIELD-2018-BI-035065

PATIENT
  Age: 69 Year
  Sex: Male
  Weight: 74 kg

DRUGS (11)
  1. ATENSINA [Suspect]
     Active Substance: CLONIDINE
     Indication: HYPERTENSION
     Route: 048
     Dates: start: 2016, end: 201803
  2. APRESOLINA [Concomitant]
     Active Substance: HYDRALAZINE HYDROCHLORIDE
     Indication: HYPERTENSION
     Route: 048
     Dates: start: 2016
  3. FUROSEMIDA [Concomitant]
     Active Substance: FUROSEMIDE
     Indication: DIURETIC THERAPY
     Route: 048
     Dates: start: 2016
  4. AAS [Concomitant]
     Active Substance: ASPIRIN
     Indication: ANTICOAGULANT THERAPY
     Route: 048
     Dates: start: 2016
  5. SUSTRATE [Concomitant]
     Active Substance: PROPATYL NITRATE
     Indication: HYPERTENSION
     Route: 060
     Dates: start: 2016
  6. ATENOLOL. [Concomitant]
     Active Substance: ATENOLOL
     Indication: HYPERTENSION
     Route: 048
     Dates: start: 2016
  7. PANTOPRAZOL [Concomitant]
     Active Substance: PANTOPRAZOLE SODIUM
     Indication: PROPHYLAXIS
     Route: 048
     Dates: start: 2016
  8. HEMAX [Concomitant]
     Indication: ANAEMIA
     Route: 058
     Dates: start: 2016
  9. ALOPURINOL [Concomitant]
     Active Substance: ALLOPURINOL
     Indication: RENAL FAILURE
     Route: 048
     Dates: start: 2016
  10. VITAMIN D [Concomitant]
     Active Substance: CHOLECALCIFEROL
     Indication: VITAMIN D DEFICIENCY
     Route: 048
     Dates: start: 2016
  11. NOVORAPID [Concomitant]
     Active Substance: INSULIN ASPART
     Indication: DIABETES MELLITUS
     Route: 058
     Dates: start: 2016

REACTIONS (2)
  - Hypertension [Recovered/Resolved]
  - Infarction [Not Recovered/Not Resolved]

NARRATIVE: CASE EVENT DATE: 201803
